FAERS Safety Report 13947744 (Version 1)
Quarter: 2017Q3

REPORT INFORMATION
  Report Type: Spontaneous
  Country: US (occurrence: US)
  Receive Date: 20170908
  Receipt Date: 20170908
  Transmission Date: 20171128
  Serious: No
  Sender: FDA-Public Use
  Company Number: US-B.I. PHARMACEUTICALS,INC./RIDGEFIELD-2017-BI-047910

PATIENT
  Age: 71 Year
  Sex: Female

DRUGS (5)
  1. SPIRIVA [Suspect]
     Active Substance: TIOTROPIUM BROMIDE MONOHYDRATE
     Indication: CHRONIC OBSTRUCTIVE PULMONARY DISEASE
     Dosage: DAILY;  FORM STRENGTH: 18 MCG; FORMULATION: CAPSULE? ADMINISTRATION CORRECT? YES ?ACTION(S) TAKEN WI
     Route: 055
     Dates: start: 2013, end: 2017
  2. DOK [Concomitant]
     Active Substance: DOCUSATE SODIUM
     Indication: INTESTINAL OBSTRUCTION
     Dosage: FORM STRENGTH: 100MG
     Route: 065
  3. PROBIOTIC [Concomitant]
     Active Substance: PROBIOTICS NOS
     Indication: INTESTINAL OBSTRUCTION
     Dosage: FORM STRENGTH: 1 BILLION CFU
     Route: 065
  4. LORAZEPAM. [Concomitant]
     Active Substance: LORAZEPAM
     Indication: ANXIETY
     Dosage: FORM STRENGTH: 0.5MG
     Route: 065
  5. LOVASTATIN. [Concomitant]
     Active Substance: LOVASTATIN
     Indication: BLOOD CHOLESTEROL INCREASED
     Dosage: FORM STRENGTH: 40MG
     Route: 065

REACTIONS (2)
  - Pseudomonas infection [Recovered/Resolved]
  - Human anaplasmosis [Recovered/Resolved]

NARRATIVE: CASE EVENT DATE: 201608
